FAERS Safety Report 12471384 (Version 1)
Quarter: 2016Q2

REPORT INFORMATION
  Report Type: Spontaneous
  Country: AU (occurrence: AU)
  Receive Date: 20160616
  Receipt Date: 20160616
  Transmission Date: 20160815
  Serious: Yes (Other)
  Sender: FDA-Public Use
  Company Number: AU-TEVA-663157ISR

PATIENT
  Age: 47 Year
  Sex: Female
  Weight: 102.9 kg

DRUGS (22)
  1. MELATONIN [Concomitant]
     Active Substance: MELATONIN
     Dosage: 5 MILLIGRAM DAILY;
  2. VITAMIN D [Concomitant]
     Active Substance: CHOLECALCIFEROL
  3. AMITRIPTYLINE [Concomitant]
     Active Substance: AMITRIPTYLINE
     Dosage: 50 MILLIGRAM DAILY;
  4. NEO-B12 [Concomitant]
  5. ABILIFY [Concomitant]
     Active Substance: ARIPIPRAZOLE
     Dosage: 5 MILLIGRAM DAILY;
  6. VALIUM [Concomitant]
     Active Substance: DIAZEPAM
     Indication: ANXIETY
     Dosage: 10 MILLIGRAM DAILY; 5-10MG TWICE DAILY (BD) WHEN REQUIRED (PRN)
  7. MAXALT [Concomitant]
     Active Substance: RIZATRIPTAN BENZOATE
  8. OXYTROL [Concomitant]
     Active Substance: OXYBUTYNIN
  9. NORSPAN [Concomitant]
     Active Substance: BUPRENORPHINE
     Indication: PAIN
     Dosage: 2.8571 MILLIGRAM DAILY;
  10. BRICANBYL [Concomitant]
  11. NUVIGIL [Suspect]
     Active Substance: ARMODAFINIL
     Indication: NARCOLEPSY
     Dates: start: 20160504, end: 20160530
  12. MIRENA [Concomitant]
     Active Substance: LEVONORGESTREL
  13. MOGADON [Concomitant]
     Active Substance: NITRAZEPAM
  14. FRUSEMIDE [Concomitant]
     Active Substance: FUROSEMIDE
  15. NEXIUM [Concomitant]
     Active Substance: ESOMEPRAZOLE MAGNESIUM
     Dosage: 40 MILLIGRAM DAILY;
  16. TOPAMAX [Concomitant]
     Active Substance: TOPIRAMATE
     Dosage: 100MG MANE, 150-200MG NOCTE
  17. IMOVANE [Concomitant]
     Active Substance: ZOPICLONE
     Dosage: 7.5 MILLIGRAM DAILY;
  18. SLOW-K [Concomitant]
     Active Substance: POTASSIUM CHLORIDE
  19. THYROXINE [Concomitant]
     Active Substance: LEVOTHYROXINE
     Dosage: 75 MICROGRAM DAILY;
  20. ENDONE [Concomitant]
     Active Substance: OXYCODONE HYDROCHLORIDE
     Indication: PAIN
     Dosage: 5-10MG FOUR TIMES A DAY WHEN REQUIRED (QID PRN)
  21. MOTILIUM [Concomitant]
     Active Substance: DOMPERIDONE
     Dosage: 30 MILLIGRAM DAILY; THREE TIMES A DAY (TDS) WHEN REQUIRED (PRN)
  22. SERETIDE [Concomitant]
     Active Substance: FLUTICASONE PROPIONATE\SALMETEROL XINAFOATE
     Dosage: ONE DOSE OF 50/500MCG

REACTIONS (11)
  - Mania [Not Recovered/Not Resolved]
  - Bipolar disorder [Not Recovered/Not Resolved]
  - Fatigue [Unknown]
  - Fear [Not Recovered/Not Resolved]
  - Anxiety [Not Recovered/Not Resolved]
  - Pain [Not Recovered/Not Resolved]
  - Dyspnoea [Unknown]
  - Sleep disorder [Not Recovered/Not Resolved]
  - Psychomotor hyperactivity [Not Recovered/Not Resolved]
  - Dizziness [Not Recovered/Not Resolved]
  - Somnambulism [Not Recovered/Not Resolved]

NARRATIVE: CASE EVENT DATE: 20160504
